FAERS Safety Report 8227748-5 (Version None)
Quarter: 2012Q1

REPORT INFORMATION
  Report Type: 
  Country: None (occurrence: None)
  Receive Date: 20120322
  Receipt Date: 20120315
  Transmission Date: 20120608
  Serious: Yes (Other)
  Sender: FDA-Public Use
  Company Number: US-PFIZER INC-2012069792

PATIENT
  Age: 79 Year
  Sex: Male

DRUGS (5)
  1. PROTONIX [Concomitant]
     Dosage: UNK
  2. LASIX [Concomitant]
     Dosage: UNK
  3. TYGACIL [Suspect]
     Dosage: UNK
  4. ZYVOX [Concomitant]
     Dosage: UNK
  5. LOVENOX [Concomitant]
     Dosage: UNK

REACTIONS (1)
  - EPIDERMAL NECROSIS [None]
